FAERS Safety Report 5822719-8 (Version None)
Quarter: 2008Q3

REPORT INFORMATION
  Report Type: 
  Country: None (occurrence: None)
  Receive Date: 20080725
  Receipt Date: 20071106
  Transmission Date: 20090109
  Serious: No
  Sender: FDA-Public Use
  Company Number: US-AMGEN-KDL251604

PATIENT
  Sex: Male
  Weight: 62.2 kg

DRUGS (14)
  1. PROCRIT [Suspect]
     Indication: ANAEMIA OF MALIGNANT DISEASE
     Dates: start: 20070101
  2. PARAPLATIN [Concomitant]
     Route: 042
     Dates: start: 20070701
  3. ETOPOSIDE [Concomitant]
     Route: 048
     Dates: start: 20070701
  4. ALBUTEROL [Concomitant]
  5. ALBUTEROL [Concomitant]
  6. OXYGEN [Concomitant]
  7. MEVACOR [Concomitant]
     Dates: start: 20040101
  8. COMPAZINE [Concomitant]
     Dates: start: 20070701
  9. BENZONATATE [Concomitant]
  10. VICODIN [Concomitant]
  11. HYDROMET [Concomitant]
     Route: 048
  12. ATROVENT [Concomitant]
     Route: 045
  13. AZMACORT [Concomitant]
     Route: 045
  14. SPIRIVA [Concomitant]
     Route: 045
     Dates: start: 20040101

REACTIONS (4)
  - GRIP STRENGTH DECREASED [None]
  - HAEMOGLOBIN DECREASED [None]
  - HYPOAESTHESIA [None]
  - PARAESTHESIA [None]
